FAERS Safety Report 5883083-1 (Version None)
Quarter: 2008Q3

REPORT INFORMATION
  Report Type: 
  Country: None (occurrence: None)
  Receive Date: 20080913
  Receipt Date: 20080825
  Transmission Date: 20090109
  Serious: No
  Sender: FDA-Public Use
  Company Number: US-ABBOTT-08P-163-0472828-00

PATIENT
  Sex: Female
  Weight: 126.21 kg

DRUGS (6)
  1. HUMIRA [Suspect]
     Indication: RHEUMATOID ARTHRITIS
     Route: 058
     Dates: start: 20070101
  2. METHOTREXATE [Concomitant]
     Indication: RHEUMATOID ARTHRITIS
     Dosage: 8-2.5 MG EVERY WEEK
     Route: 048
     Dates: start: 20050101
  3. FOLIC ACID [Concomitant]
     Indication: VITAMIN SUPPLEMENTATION
     Dosage: 1 MG DAILY
     Route: 048
     Dates: start: 20050101
  4. MAXZIDE [Concomitant]
     Indication: HYPERTENSION
     Dosage: 37.5/25 MG DAILY
     Route: 048
     Dates: start: 20030101
  5. GLUCOSAMIDE [Concomitant]
     Indication: SUPPLEMENTATION THERAPY
     Dosage: 1500 MG DAILY
     Route: 048
     Dates: start: 20050101
  6. CENTRUM-PERFORMANCE [Concomitant]
     Indication: VITAMIN SUPPLEMENTATION
     Dosage: 1 DAILY
     Route: 048

REACTIONS (1)
  - SINUSITIS [None]
